FAERS Safety Report 18257765 (Version 2)
Quarter: 2020Q3

REPORT INFORMATION
  Report Type: Spontaneous
  Country: US (occurrence: US)
  Receive Date: 20200911
  Receipt Date: 20200930
  Transmission Date: 20201103
  Serious: No
  Sender: FDA-Public Use
  Company Number: US-LUPIN PHARMACEUTICALS INC.-2020-05443

PATIENT
  Age: 61 Year
  Sex: Male
  Weight: 84 kg

DRUGS (2)
  1. TESTOSTERONE GEL 1.62% [Suspect]
     Active Substance: TESTOSTERONE
     Indication: HYPOGONADISM
     Dosage: UNK UNK, QD (3 PUMPS DAILY (60.75MG))
     Route: 061
     Dates: start: 20200811
  2. TESTOSTERONE GEL 1.62% [Suspect]
     Active Substance: TESTOSTERONE
     Dosage: UNK UNK, QD (3 PUMPS DAILY (60.75MG))
     Route: 061
     Dates: start: 202003

REACTIONS (3)
  - Device mechanical issue [Unknown]
  - Incorrect dose administered by product [Unknown]
  - No adverse event [Unknown]

NARRATIVE: CASE EVENT DATE: 20200822
